FAERS Safety Report 16664834 (Version 2)
Quarter: 2019Q3

REPORT INFORMATION
  Report Type: Spontaneous
  Country: TH (occurrence: TH)
  Receive Date: 20190803
  Receipt Date: 20190806
  Transmission Date: 20191004
  Serious: Yes (Death, Hospitalization)
  Sender: FDA-Public Use
  Company Number: TH-JNJFOC-20190735100

PATIENT
  Age: 3 Month
  Sex: Male

DRUGS (1)
  1. PARACETAMOL [Suspect]
     Active Substance: ACETAMINOPHEN
     Indication: PYREXIA
     Dosage: 1500 MG (300 MG/KG) OVER 3 DAYS
     Route: 065

REACTIONS (6)
  - Coagulopathy [Fatal]
  - Cerebral cyst [Fatal]
  - Incorrect dose administered [Fatal]
  - Cerebral haemorrhage [Fatal]
  - Acute hepatic failure [Fatal]
  - Overdose [Fatal]
